FAERS Safety Report 9269068 (Version 3)
Quarter: 2013Q3

REPORT INFORMATION
  Report Type: Report from Study
  Country: CA (occurrence: CA)
  Receive Date: 20130503
  Receipt Date: 20130827
  Transmission Date: 20140515
  Serious: Yes (Other)
  Sender: FDA-Public Use
  Company Number: CA-ROCHE-1206469

PATIENT
  Age: 74 Year
  Sex: Female
  Weight: 124.2 kg

DRUGS (19)
  1. RITUXAN [Suspect]
     Indication: RHEUMATOID ARTHRITIS
     Route: 042
     Dates: start: 20130321, end: 20130405
  2. VALIUM [Concomitant]
     Route: 065
  3. APO-CLONIDINE [Concomitant]
     Indication: PRODUCT USED FOR UNKNOWN INDICATION
     Route: 065
  4. LYRICA [Concomitant]
     Indication: PRODUCT USED FOR UNKNOWN INDICATION
     Route: 065
  5. RISEDRONATE [Concomitant]
     Indication: PRODUCT USED FOR UNKNOWN INDICATION
     Route: 065
  6. CRESTOR [Concomitant]
     Indication: PRODUCT USED FOR UNKNOWN INDICATION
     Route: 065
  7. RASILEZ [Concomitant]
     Indication: PRODUCT USED FOR UNKNOWN INDICATION
     Route: 065
  8. DIPHENHYDRAMINE HCL [Concomitant]
     Indication: PREMEDICATION
     Route: 048
     Dates: start: 20130321, end: 20130405
  9. ACETAMINOPHEN [Concomitant]
     Indication: PREMEDICATION
     Route: 048
     Dates: start: 20130321, end: 20130405
  10. METHYLPREDNISOLONE [Concomitant]
     Indication: PREMEDICATION
     Route: 042
     Dates: start: 20130321, end: 20130405
  11. FOLIC ACID [Concomitant]
     Indication: PRODUCT USED FOR UNKNOWN INDICATION
     Route: 065
  12. BISOPROLOL [Concomitant]
  13. ORPHENADRINE [Concomitant]
     Dosage: AT NIGHT
     Route: 065
  14. SYNTHROID [Concomitant]
  15. ESTRACE [Concomitant]
  16. CLONAZEPAM [Concomitant]
  17. VALSARTAN [Concomitant]
  18. METHOTREXATE [Concomitant]
     Route: 065
  19. CODEINE [Concomitant]

REACTIONS (7)
  - Weight increased [Not Recovered/Not Resolved]
  - Inflammation [Not Recovered/Not Resolved]
  - Headache [Not Recovered/Not Resolved]
  - Fatigue [Not Recovered/Not Resolved]
  - Asthenia [Not Recovered/Not Resolved]
  - Injection site erythema [Not Recovered/Not Resolved]
  - Drug ineffective [Unknown]
